FAERS Safety Report 5364368-4 (Version None)
Quarter: 2007Q2

REPORT INFORMATION
  Report Type: 
  Country: None (occurrence: None)
  Receive Date: 20070618
  Receipt Date: 20070607
  Transmission Date: 20071010
  Serious: Yes (Death, Life-Threatening, Hospitalization)
  Sender: FDA-Public Use
  Company Number: CLOF-10544

PATIENT
  Age: 75 Year
  Sex: Male
  Weight: 77.9 kg

DRUGS (1)
  1. CLOFARABINE. MFR: GENZYME [Suspect]
     Indication: ACUTE MYELOID LEUKAEMIA
     Dosage: 30 MG/M2 QD IV
     Route: 042
     Dates: start: 20070515, end: 20070519

REACTIONS (12)
  - ADRENOMEGALY [None]
  - BACTERIAL SEPSIS [None]
  - BRONCHOPULMONARY ASPERGILLOSIS [None]
  - DISSEMINATED INTRAVASCULAR COAGULATION [None]
  - DRUG TOXICITY [None]
  - FEBRILE NEUTROPENIA [None]
  - GENERAL PHYSICAL HEALTH DETERIORATION [None]
  - PERICARDIAL EFFUSION [None]
  - PNEUMONIA BACTERIAL [None]
  - PULMONARY ALVEOLAR HAEMORRHAGE [None]
  - STAPHYLOCOCCAL INFECTION [None]
  - STENOTROPHOMONAS INFECTION [None]
